FAERS Safety Report 9349079 (Version 8)
Quarter: 2014Q2

REPORT INFORMATION
  Report Type: Report from Study
  Country: DE (occurrence: DE)
  Receive Date: 20130614
  Receipt Date: 20140415
  Transmission Date: 20141212
  Serious: Yes (Hospitalization)
  Sender: FDA-Public Use
  Company Number: DE-PFIZER INC-2013169468

PATIENT
  Age: 73 Year
  Sex: Female
  Weight: 73.7 kg

DRUGS (8)
  1. TOFACITINIB CITRATE [Suspect]
     Indication: RHEUMATOID ARTHRITIS
     Dosage: 10 MG, 2X/DAY
     Route: 048
     Dates: start: 20100607, end: 20130524
  2. PANTOZOL [Concomitant]
     Indication: GASTRITIS PROPHYLAXIS
     Dosage: 40 MG, 1X/DAY
     Route: 048
     Dates: start: 20120605, end: 20130524
  3. MARCUMAR [Concomitant]
     Indication: THROMBOSIS
     Dosage: UNK
     Route: 048
     Dates: start: 20120613, end: 20130524
  4. L-THYROXIN [Concomitant]
     Indication: HYPOTHYROIDISM
     Dosage: 100 MG, 1X/DAY
     Route: 048
     Dates: start: 20120615, end: 20130524
  5. ASPIRINE [Concomitant]
     Indication: THROMBOSIS PROPHYLAXIS
     Dosage: 100 MG, 1X/DAY
     Route: 048
  6. METFORMIN [Concomitant]
     Indication: DIABETES MELLITUS
     Dosage: 500 MG, 1X/DAY
     Route: 048
     Dates: start: 20110428, end: 20130524
  7. RAMIPRIL [Concomitant]
     Indication: HYPERTENSION
     Dosage: 5 MG, 1X/DAY
     Route: 048
     Dates: start: 20110428
  8. PRAVASTATIN [Concomitant]
     Indication: HYPERPROTEINAEMIA
     Dosage: 20 MG, 1X/DAY
     Route: 048
     Dates: start: 20120606

REACTIONS (2)
  - Radius fracture [Recovered/Resolved]
  - Fall [Recovered/Resolved]
